FAERS Safety Report 8850721 (Version 2)
Quarter: 2012Q4

REPORT INFORMATION
  Report Type: 
  Country: US (occurrence: US)
  Receive Date: 20121019
  Receipt Date: 20121108
  Transmission Date: 20130627
  Serious: Yes (Hospitalization, Other)
  Sender: FDA-Public Use
  Company Number: US-JNJFOC-20121009027

PATIENT
  Sex: Male
  Weight: 97.52 kg

DRUGS (4)
  1. XARELTO [Suspect]
     Indication: HYPERCOAGULATION
     Route: 048
     Dates: start: 20120718, end: 20121009
  2. PLAVIX [Concomitant]
     Indication: HYPERCOAGULATION
     Dates: start: 2004
  3. BAYER ASPIRIN [Concomitant]
     Indication: HYPERCOAGULATION
     Dates: start: 2004
  4. AMBIEN [Concomitant]
     Indication: INSOMNIA
     Dates: start: 2011

REACTIONS (5)
  - Ocular icterus [Recovering/Resolving]
  - Blood bilirubin abnormal [Recovering/Resolving]
  - Off label use [Unknown]
  - Dyspepsia [Recovering/Resolving]
  - Abdominal pain upper [Recovering/Resolving]
